FAERS Safety Report 4627964-5 (Version None)
Quarter: 2005Q2

REPORT INFORMATION
  Report Type: 
  Country: None (occurrence: None)
  Receive Date: 20050401
  Receipt Date: 20050318
  Transmission Date: 20051028
  Serious: Yes (Disabling)
  Sender: FDA-Public Use
  Company Number: S05-FRA-01312-01

PATIENT
  Age: 77 Year
  Sex: Female

DRUGS (3)
  1. EBIXA (MEMANTINE) [Suspect]
     Indication: DEMENTIA ALZHEIMER'S TYPE
     Dosage: 10 MG BID PO
     Route: 048
     Dates: start: 20031201
  2. ARICEPT [Concomitant]
  3. EXELON [Concomitant]

REACTIONS (2)
  - EPILEPSY [None]
  - TREMOR [None]
